FAERS Safety Report 5912131-5 (Version None)
Quarter: 2008Q4

REPORT INFORMATION
  Report Type: 
  Country: None (occurrence: None)
  Receive Date: 20081003
  Receipt Date: 20081003
  Transmission Date: 20090506
  Serious: Yes (Hospitalization)
  Sender: FDA-Public Use
  Company Number: None

PATIENT
  Age: 44 Year
  Sex: Male

DRUGS (2)
  1. CEPHALEXIN [Suspect]
     Indication: PERIRECTAL ABSCESS
     Dosage: 500 MG OTHER PO
     Route: 048
     Dates: start: 20080828, end: 20080907
  2. AMOXICILLIN + CLAVULANATE POTASSIUM [Suspect]
     Indication: PERIRECTAL ABSCESS
     Dosage: 1 TAB MG OTHER PO
     Route: 048
     Dates: start: 20080830, end: 20080909

REACTIONS (1)
  - CLOSTRIDIAL INFECTION [None]
